FAERS Safety Report 8820875 (Version 2)
Quarter: 2012Q4

REPORT INFORMATION
  Report Type: 
  Country: CA (occurrence: CA)
  Receive Date: 20121002
  Receipt Date: 20121023
  Transmission Date: 20130627
  Serious: Yes (Other)
  Sender: FDA-Public Use
  Company Number: CA-PFIZER INC-2012237738

PATIENT
  Age: 66 Year
  Sex: Male
  Weight: 90 kg

DRUGS (3)
  1. AXITINIB [Suspect]
     Dosage: 5 mg, 2x/day
     Route: 048
     Dates: start: 20120816, end: 20120904
  2. AXITINIB [Suspect]
     Dosage: 3 mg, 2x/day
     Route: 048
     Dates: start: 20120905, end: 20120913
  3. TYLENOL [Concomitant]
     Indication: ABDOMINAL PAIN
     Dosage: UNK
     Route: 048
     Dates: start: 20120215

REACTIONS (1)
  - Hyperbilirubinaemia [Not Recovered/Not Resolved]
